FAERS Safety Report 12341093 (Version 1)
Quarter: 2016Q2

REPORT INFORMATION
  Report Type: Spontaneous
  Country: FR (occurrence: FR)
  Receive Date: 20160506
  Receipt Date: 20160506
  Transmission Date: 20160815
  Serious: Yes (Other)
  Sender: FDA-Public Use
  Company Number: FR-009507513-1604FRA018091

PATIENT
  Age: 54 Year
  Sex: Male

DRUGS (7)
  1. KEPPRA [Concomitant]
     Active Substance: LEVETIRACETAM
  2. VIMPAT [Concomitant]
     Active Substance: LACOSAMIDE
  3. DULOXETINE HYDROCHLORIDE. [Concomitant]
     Active Substance: DULOXETINE HYDROCHLORIDE
  4. TEMODAL [Suspect]
     Active Substance: TEMOZOLOMIDE
     Indication: ANAPLASTIC ASTROCYTOMA
     Dosage: UNK
     Dates: start: 201502, end: 201507
  5. PRAZEPAM [Concomitant]
     Active Substance: PRAZEPAM
  6. IRINOTECAN HYDROCHLORIDE. [Suspect]
     Active Substance: IRINOTECAN HYDROCHLORIDE
     Indication: GLIOBLASTOMA
     Dosage: UNK
     Dates: start: 20160225, end: 20160225
  7. AVASTIN [Suspect]
     Active Substance: BEVACIZUMAB
     Indication: GLIOBLASTOMA
     Dosage: UNK
     Dates: start: 20160225, end: 20160225

REACTIONS (2)
  - Peripheral swelling [Unknown]
  - Fingerprint loss [Unknown]

NARRATIVE: CASE EVENT DATE: 20160225
